FAERS Safety Report 8380183-1 (Version None)
Quarter: 2012Q2

REPORT INFORMATION
  Report Type: 
  Country: None (occurrence: None)
  Receive Date: 20120523
  Receipt Date: 20120520
  Transmission Date: 20120825
  Serious: Yes (Other)
  Sender: FDA-Public Use
  Company Number: US-PFIZER INC-2012121553

PATIENT
  Sex: Male
  Weight: 48.98 kg

DRUGS (2)
  1. VIAGRA [Suspect]
     Dosage: 15 MG ONCE (5 TABLETS OF 3 MG)
     Route: 048
     Dates: start: 20120520
  2. VIAGRA [Suspect]
     Dosage: UNK
     Route: 048

REACTIONS (3)
  - SKIN BURNING SENSATION [None]
  - ERECTION INCREASED [None]
  - PAINFUL ERECTION [None]
